FAERS Safety Report 6745619-8 (Version None)
Quarter: 2010Q2

REPORT INFORMATION
  Report Type: 
  Country: None (occurrence: None)
  Receive Date: 20100528
  Receipt Date: 20100519
  Transmission Date: 20101027
  Serious: Yes (Other)
  Sender: FDA-Public Use
  Company Number: IT-JNJFOC-20100403310

PATIENT
  Age: 18 Year
  Sex: Female

DRUGS (1)
  1. TOPAMAX [Suspect]
     Indication: HEADACHE
     Route: 048

REACTIONS (1)
  - DRUG ABUSE [None]
